FAERS Safety Report 10061018 (Version 2)
Quarter: 2014Q2

REPORT INFORMATION
  Report Type: Spontaneous
  Country: JP (occurrence: JP)
  Receive Date: 20140405
  Receipt Date: 20140409
  Transmission Date: 20141212
  Serious: Yes (Hospitalization, Other)
  Sender: FDA-Public Use
  Company Number: PHHY2014JP040957

PATIENT
  Age: 76 Year
  Sex: Male

DRUGS (2)
  1. NEORAL [Suspect]
     Indication: NEPHROTIC SYNDROME
     Dosage: 100 MG, DAILY
     Route: 048
  2. PREDNISOLONE [Suspect]
     Indication: NEPHROTIC SYNDROME
     Dosage: 40 MG, DAILY
     Route: 048

REACTIONS (4)
  - Aortic aneurysm [Unknown]
  - Aortic aneurysm rupture [Recovered/Resolved]
  - Infection [Recovered/Resolved]
  - Pneumonia streptococcal [Unknown]
